FAERS Safety Report 4396228-X (Version None)
Quarter: 2004Q3

REPORT INFORMATION
  Report Type: 
  Country: None (occurrence: None)
  Receive Date: 20040706
  Receipt Date: 20040603
  Transmission Date: 20050211
  Serious: No
  Sender: FDA-Public Use
  Company Number: B0334554A

PATIENT
  Age: 36 Year
  Sex: Male

DRUGS (4)
  1. ABACAVIR SULPHATE (GENERIC) (ABACAVIR SULPHATE) [Suspect]
     Indication: HIV INFECTION
     Dates: start: 20000518
  2. DIDANOSINE (DIDANOSINE) [Suspect]
     Indication: HIV INFECTION
     Dates: start: 20000518
  3. STAVUDINE (STAVUDINE) [Suspect]
     Indication: HIV INFECTION
     Dates: start: 20000518
  4. LOPINAVIR (LOPINAVIR) [Suspect]
     Indication: HIV INFECTION
     Dates: start: 20000518

REACTIONS (2)
  - SPLENOMEGALY [None]
  - VISCERAL LEISHMANIASIS [None]
